APPROVED DRUG PRODUCT: CLOBETASOL PROPIONATE
Active Ingredient: CLOBETASOL PROPIONATE
Strength: 0.05%
Dosage Form/Route: OINTMENT;TOPICAL
Application: A208933 | Product #001
Applicant: GLENMARK SPECIALTY SA
Approved: Mar 20, 2017 | RLD: No | RS: No | Type: DISCN